FAERS Safety Report 26193984 (Version 1)
Quarter: 2025Q4

REPORT INFORMATION
  Report Type: Spontaneous
  Country: US (occurrence: US)
  Receive Date: 20251224
  Receipt Date: 20251224
  Transmission Date: 20260118
  Serious: Yes (Hospitalization)
  Sender: BRISTOL-MYERS SQUIBB COMPANY
  Company Number: US-BRISTOL-MYERS SQUIBB COMPANY-2025-172073

PATIENT
  Age: 84 Year
  Sex: Male
  Weight: 94.35 kg

DRUGS (2)
  1. POMALYST [Suspect]
     Active Substance: POMALIDOMIDE
     Indication: Plasma cell myeloma
     Dosage: 3WKSON/1WKOFF
     Route: 048
  2. NINLARO [Concomitant]
     Active Substance: IXAZOMIB CITRATE
     Indication: Product used for unknown indication

REACTIONS (6)
  - Contusion [Recovered/Resolved]
  - Fall [Recovered/Resolved]
  - Renal disorder [Recovered/Resolved]
  - Fatigue [Recovered/Resolved]
  - Blood glucose increased [Unknown]
  - Blood pressure decreased [Unknown]
